FAERS Safety Report 24179417 (Version 1)
Quarter: 2024Q3

REPORT INFORMATION
  Report Type: Spontaneous
  Country: US (occurrence: US)
  Receive Date: 20240806
  Receipt Date: 20240806
  Transmission Date: 20241016
  Serious: No
  Sender: DR REDDYS
  Company Number: US-DRL-USA-LIT/USA/24/0011255

PATIENT
  Age: 36 Year
  Sex: Female

DRUGS (8)
  1. SIROLIMUS [Suspect]
     Active Substance: SIROLIMUS
     Indication: Chronic spontaneous urticaria
  2. SIROLIMUS [Suspect]
     Active Substance: SIROLIMUS
     Indication: Immunosuppressant drug therapy
     Dosage: RESTARTED
  3. TACROLIMUS [Suspect]
     Active Substance: TACROLIMUS
     Indication: Chronic spontaneous urticaria
     Route: 048
  4. TACROLIMUS [Suspect]
     Active Substance: TACROLIMUS
     Indication: Immunosuppressant drug therapy
  5. OMALIZUMAB [Concomitant]
     Active Substance: OMALIZUMAB
     Indication: Chronic spontaneous urticaria
     Dosage: 300 MG Q4W
  6. OMALIZUMAB [Concomitant]
     Active Substance: OMALIZUMAB
     Dosage: 450 MG Q4W
  7. PREDNISONE [Concomitant]
     Active Substance: PREDNISONE
     Indication: Chronic spontaneous urticaria
     Dosage: 20 MG 2-3 TIMES/WK
  8. PREDNISONE [Concomitant]
     Active Substance: PREDNISONE
     Dosage: 450 MG Q4W

REACTIONS (4)
  - Drug effective for unapproved indication [Unknown]
  - Dysgeusia [Unknown]
  - Oedema peripheral [Unknown]
  - Drug ineffective for unapproved indication [Unknown]
